FAERS Safety Report 8059762-7 (Version None)
Quarter: 2012Q1

REPORT INFORMATION
  Report Type: 
  Country: None (occurrence: None)
  Receive Date: 20120120
  Receipt Date: 20120110
  Transmission Date: 20120608
  Serious: Yes (Other)
  Sender: FDA-Public Use
  Company Number: US-NAPPMUNDI-DEU-2012-0008521

PATIENT
  Age: 3 Year
  Sex: Male

DRUGS (11)
  1. HYDROMORPHONE HCL [Suspect]
     Indication: LOCAL ANAESTHESIA
     Dosage: UNK
     Route: 065
  2. SEVOFLURANE [Concomitant]
     Indication: GENERAL ANAESTHESIA
     Route: 065
  3. BUPIVACAINE HCL [Concomitant]
     Indication: POSTOPERATIVE ANALGESIA
     Route: 065
  4. NEOSTIGMINE [Concomitant]
     Indication: INTRAOPERATIVE CARE
     Route: 042
  5. CLONIDINE [Concomitant]
     Indication: POSTOPERATIVE ANALGESIA
     Route: 065
  6. ATRACURIUM [Concomitant]
     Indication: INTRAOPERATIVE CARE
     Route: 042
  7. KETOROLAC TROMETHAMINE [Concomitant]
     Indication: INTRAOPERATIVE CARE
     Route: 042
  8. GLYCOPYRROLATE                     /00196202/ [Concomitant]
     Indication: INTRAOPERATIVE CARE
     Dosage: UNK
     Route: 042
  9. FENTANYL [Concomitant]
     Indication: INTRAOPERATIVE CARE
     Route: 042
  10. MIDAZOLAM [Concomitant]
     Indication: INTRAOPERATIVE CARE
     Route: 042
  11. EPINEPHRINE [Concomitant]
     Indication: POSTOPERATIVE ANALGESIA
     Dosage: 25 UNK, UNK
     Route: 065

REACTIONS (1)
  - NODAL ARRHYTHMIA [None]
